FAERS Safety Report 5138100-3 (Version None)
Quarter: 2006Q4

REPORT INFORMATION
  Report Type: 
  Country: None (occurrence: None)
  Receive Date: 20061030
  Receipt Date: 20060414
  Transmission Date: 20070319
  Serious: No
  Sender: FDA-Public Use
  Company Number: US-GLAXOSMITHKLINE-A0601836A

PATIENT
  Age: 54 Year
  Sex: Male
  Weight: 90.9 kg

DRUGS (9)
  1. ADVAIR HFA [Suspect]
     Indication: DRUG USE FOR UNKNOWN INDICATION
     Dosage: 1PUFF TWICE PER DAY
     Route: 055
     Dates: start: 20030801
  2. FUROSEMIDE [Concomitant]
  3. ALBUTEROL [Concomitant]
  4. METFORMIN HCL [Concomitant]
  5. PROTONIX [Concomitant]
  6. IBUPROFEN [Concomitant]
  7. OXYCODONE HCL [Concomitant]
  8. ALTACE [Concomitant]
  9. ENDOCET [Concomitant]

REACTIONS (2)
  - ABDOMINAL DISTENSION [None]
  - DRUG INEFFECTIVE [None]
